FAERS Safety Report 9922171 (Version 1)
Quarter: 2014Q1

REPORT INFORMATION
  Report Type: Spontaneous
  Country: US (occurrence: None)
  Receive Date: 20140224
  Receipt Date: 20140224
  Transmission Date: 20141002
  Serious: Yes (Other)
  Sender: FDA-Public Use
  Company Number: None

PATIENT
  Age: 39 Year
  Sex: Female

DRUGS (8)
  1. RIBASPHERE [Suspect]
     Indication: CHRONIC HEPATITIS C
     Route: 048
     Dates: start: 20131009, end: 20140219
  2. INCIVEK [Suspect]
     Indication: CHRONIC HEPATITIS C
     Route: 048
     Dates: start: 20131009, end: 20140219
  3. INCIVEK [Suspect]
     Route: 048
     Dates: start: 20131009, end: 20140219
  4. PEGASYS [Concomitant]
  5. SYNTHROID [Concomitant]
  6. MOTRIN [Concomitant]
  7. VITAMIN D [Concomitant]
  8. VITAMIN C [Concomitant]

REACTIONS (5)
  - Alopecia [None]
  - Nausea [None]
  - Rash [None]
  - Headache [None]
  - Blood count abnormal [None]
